FAERS Safety Report 5512499-8 (Version None)
Quarter: 2007Q4

REPORT INFORMATION
  Report Type: 
  Country: None (occurrence: None)
  Receive Date: 20071112
  Receipt Date: 20070530
  Transmission Date: 20080405
  Serious: No
  Sender: FDA-Public Use
  Company Number: A0652647A

PATIENT
  Sex: Female

DRUGS (5)
  1. AVANDAMET [Suspect]
     Route: 048
  2. AVANDIA [Suspect]
     Route: 065
  3. CRESTOR [Concomitant]
  4. FOSAMAX [Concomitant]
  5. FOSPRIL [Concomitant]

REACTIONS (2)
  - ARTERIAL DISORDER [None]
  - HYPERTENSION [None]
